FAERS Safety Report 5573539-3 (Version None)
Quarter: 2007Q4

REPORT INFORMATION
  Report Type: 
  Country: None (occurrence: None)
  Receive Date: 20071226
  Receipt Date: 20071217
  Transmission Date: 20080405
  Serious: Yes (Other)
  Sender: FDA-Public Use
  Company Number: US-JNJFOC-20071005202

PATIENT
  Sex: Female
  Weight: 70.31 kg

DRUGS (19)
  1. REMICADE [Suspect]
     Route: 042
  2. REMICADE [Suspect]
     Route: 042
  3. REMICADE [Suspect]
     Route: 042
  4. REMICADE [Suspect]
     Route: 042
  5. REMICADE [Suspect]
     Route: 042
  6. REMICADE [Suspect]
     Indication: JUVENILE ARTHRITIS
     Route: 042
  7. ADVAIR DISKUS 100/50 [Concomitant]
  8. ZANTAC [Concomitant]
  9. SINGULAIR [Concomitant]
  10. FOLIC ACID [Concomitant]
  11. HYDROCHLOROTHIAZIDE [Concomitant]
  12. METHOTREXATE [Concomitant]
     Indication: RHEUMATOID ARTHRITIS
  13. ALLERGY SHOTS [Concomitant]
  14. ZYRTEC [Concomitant]
  15. ALBUTEROL [Concomitant]
     Route: 055
  16. CALCIUM SUPPLEMENTS [Concomitant]
  17. NAPROSON [Concomitant]
     Indication: RHEUMATOID ARTHRITIS
  18. PREDNISONE [Concomitant]
     Indication: RHEUMATOID ARTHRITIS
  19. ASPIRIN [Concomitant]

REACTIONS (2)
  - HYPERTHYROIDISM [None]
  - MENORRHAGIA [None]
